FAERS Safety Report 9589388 (Version 3)
Quarter: 2014Q2

REPORT INFORMATION
  Report Type: Spontaneous
  Country: US (occurrence: US)
  Receive Date: 20131003
  Receipt Date: 20140409
  Transmission Date: 20141212
  Serious: Yes (Hospitalization)
  Sender: FDA-Public Use
  Company Number: US-B.I. PHARMACEUTICALS,INC./RIDGEFIELD-2013-BI-30293BP

PATIENT
  Age: 60 Year
  Sex: Male
  Weight: 123.3 kg

DRUGS (12)
  1. PRADAXA [Suspect]
     Indication: ANTICOAGULANT THERAPY
     Dosage: 300 MG
     Route: 048
     Dates: start: 20110811, end: 20130508
  2. ALLOPURINOL [Concomitant]
     Dosage: 300 MG
     Route: 065
     Dates: start: 2006
  3. AMITRIPTYLINE [Concomitant]
     Dosage: 10 MG
     Route: 065
     Dates: start: 2008
  4. BYSTOLIC [Concomitant]
     Dosage: 10 MG
     Route: 065
     Dates: start: 2008
  5. FENOFIBRATE [Concomitant]
     Dosage: 145 MG
     Route: 065
     Dates: start: 2006
  6. LASIX [Concomitant]
     Dosage: 80 MG
     Route: 065
     Dates: start: 2007
  7. LISINOPRIL [Concomitant]
     Dosage: 5 MG
     Route: 065
     Dates: start: 2007
  8. MORPHINE [Concomitant]
     Dosage: 15 MG
     Route: 065
     Dates: start: 2007
  9. POTASSIUM CHLORIDE [Concomitant]
     Route: 065
     Dates: start: 2007
  10. COREG [Concomitant]
     Dosage: 12.5 MG
     Route: 065
  11. DOCUSATE SODIUM [Concomitant]
     Dosage: 100 MG
     Route: 065
  12. LEVOXYL [Concomitant]
     Dosage: 50 MCG
     Route: 065

REACTIONS (4)
  - Gastrointestinal haemorrhage [Unknown]
  - Haemorrhagic anaemia [Unknown]
  - Coagulopathy [Unknown]
  - Epistaxis [Recovered/Resolved]
